FAERS Safety Report 10206191 (Version 1)
Quarter: 2014Q2

REPORT INFORMATION
  Report Type: Spontaneous
  Country: US (occurrence: None)
  Receive Date: 20140527
  Receipt Date: 20140527
  Transmission Date: 20141212
  Serious: Yes (Hospitalization)
  Sender: FDA-Public Use
  Company Number: 2014US00470

PATIENT
  Age: 13 Year
  Sex: Female

DRUGS (5)
  1. CITALOPRAM [Suspect]
  2. DIPHENHYDRAMINE [Suspect]
  3. BUPROPION [Suspect]
  4. ACETAMINOPHEN [Suspect]
  5. NAPROXEN [Suspect]

REACTIONS (8)
  - Overdose [None]
  - Hyperthermia [None]
  - Myoclonus [None]
  - Muscle rigidity [None]
  - Hallucination [None]
  - Agitation [None]
  - Toxicity to various agents [None]
  - Hypohidrosis [None]
